FAERS Safety Report 8376562-9 (Version None)
Quarter: 2012Q2

REPORT INFORMATION
  Report Type: 
  Country: None (occurrence: None)
  Receive Date: 20120518
  Receipt Date: 20120423
  Transmission Date: 20120825
  Serious: Yes (Disabling)
  Sender: FDA-Public Use
  Company Number: COL_11636_2012

PATIENT
  Sex: Female

DRUGS (4)
  1. COLGATE TOTAL CLEAN MINT/ORIGINAL TOOTHPASTE [Suspect]
     Indication: DENTAL CARIES
     Dosage: (COVERED HEAD OF TOOTHBRUSH/ONCE DAILY/ ORAL)
     Route: 048
     Dates: start: 20120101
  2. COLGATE TOTAL CLEAN MINT/ORIGINAL TOOTHPASTE [Suspect]
     Indication: GINGIVITIS
     Dosage: (COVERED HEAD OF TOOTHBRUSH/ONCE DAILY/ ORAL)
     Route: 048
     Dates: start: 20120101
  3. COLGATE TOTAL CLEAN MINT/ORIGINAL TOOTHPASTE [Suspect]
     Indication: DENTAL PLAQUE
     Dosage: (COVERED HEAD OF TOOTHBRUSH/ONCE DAILY/ ORAL)
     Route: 048
     Dates: start: 20120101
  4. MOTRIN [Concomitant]

REACTIONS (3)
  - AGEUSIA [None]
  - DYSGEUSIA [None]
  - VERTIGO [None]
